FAERS Safety Report 12426805 (Version 4)
Quarter: 2019Q4

REPORT INFORMATION
  Report Type: Report from Study
  Country: None (occurrence: BR)
  Receive Date: 20160601
  Receipt Date: 20191016
  Transmission Date: 20200122
  Serious: Yes (Hospitalization, Other)
  Sender: FDA-Public Use
  Company Number: BR-ABBVIE-16K-020-1639955-00

PATIENT
  Age: 42 Year
  Sex: Female
  Weight: 52 kg

DRUGS (9)
  1. HUMIRA [Suspect]
     Active Substance: ADALIMUMAB
     Indication: CROHN^S DISEASE
     Dosage: LOADING DOSE, WEEK 0
     Route: 058
     Dates: start: 20120101, end: 20120101
  2. HUMIRA [Suspect]
     Active Substance: ADALIMUMAB
     Route: 058
     Dates: end: 2016
  3. AZATHIOPRINE. [Concomitant]
     Active Substance: AZATHIOPRINE
     Indication: CROHN^S DISEASE
     Route: 048
     Dates: start: 2007
  4. TEGRETOL [Concomitant]
     Active Substance: CARBAMAZEPINE
     Indication: SYNCOPE
     Dosage: UNKNOWN DOSE
     Route: 048
  5. TEGRETOL [Concomitant]
     Active Substance: CARBAMAZEPINE
     Indication: EPILEPSY
     Dosage: UNKNOWN DOSE
     Route: 048
     Dates: start: 1989
  6. HYDROXYCHLOROQUINE [Concomitant]
     Active Substance: HYDROXYCHLOROQUINE
     Indication: SYSTEMIC LUPUS ERYTHEMATOSUS
     Route: 048
     Dates: start: 2016
  7. HUMIRA [Suspect]
     Active Substance: ADALIMUMAB
     Route: 058
     Dates: start: 2016
  8. HUMIRA [Suspect]
     Active Substance: ADALIMUMAB
     Dosage: LOADING DOSE, WEEK 2
     Route: 058
     Dates: start: 201201, end: 201201
  9. OMEPRAZOLE. [Concomitant]
     Active Substance: OMEPRAZOLE
     Indication: PROPHYLAXIS
     Route: 048
     Dates: start: 2006

REACTIONS (8)
  - Blood test abnormal [Unknown]
  - Small intestinal obstruction [Recovered/Resolved]
  - Systemic lupus erythematosus [Recovering/Resolving]
  - Arthralgia [Recovered/Resolved]
  - Mobility decreased [Unknown]
  - Post procedural inflammation [Unknown]
  - Rheumatic disorder [Unknown]
  - Depressed mood [Recovering/Resolving]

NARRATIVE: CASE EVENT DATE: 2014
